FAERS Safety Report 23761061 (Version 1)
Quarter: 2024Q2

REPORT INFORMATION
  Report Type: Spontaneous
  Country: US (occurrence: US)
  Receive Date: 20240419
  Receipt Date: 20240419
  Transmission Date: 20240715
  Serious: Yes (Other)
  Sender: FDA-Public Use
  Company Number: US-MSNLABS-2024MSNLIT00865

PATIENT

DRUGS (2)
  1. ERLOTINIB [Suspect]
     Active Substance: ERLOTINIB
     Indication: Adenocarcinoma pancreas
     Dosage: 100 MG DAILY
     Route: 065
     Dates: start: 202302, end: 202307
  2. GEMCITABINE [Suspect]
     Active Substance: GEMCITABINE
     Indication: Adenocarcinoma pancreas
     Dosage: 1,000-600 MG/M2, ADJUSTED PER CYTOPENIA; FIRST 2 CYCLE DAYS 1, 8, AND 15 OF 28-DAY CYCLE, CYCLES 3,
     Route: 065
     Dates: start: 202302, end: 202307

REACTIONS (1)
  - Pneumonitis [Recovered/Resolved]

NARRATIVE: CASE EVENT DATE: 20230701
